FAERS Safety Report 14734684 (Version 1)
Quarter: 2018Q2

REPORT INFORMATION
  Report Type: Report from Study
  Country: US (occurrence: US)
  Receive Date: 20180409
  Receipt Date: 20180409
  Transmission Date: 20180711
  Serious: Yes (Hospitalization, Other)
  Sender: FDA-Public Use
  Company Number: US-MYLANLABS-2018M1021739

PATIENT
  Age: 3 Year
  Sex: Male
  Weight: 14.2 kg

DRUGS (31)
  1. VINCRISTINE [Suspect]
     Active Substance: VINCRISTINE
     Indication: ACUTE LYMPHOCYTIC LEUKAEMIA
     Dosage: 1 MG,ONCE
     Route: 042
     Dates: start: 20180104, end: 20180104
  2. MIRALAX [Concomitant]
     Active Substance: POLYETHYLENE GLYCOL 3350
     Indication: PRODUCT USED FOR UNKNOWN INDICATION
     Dosage: UNKNOWN
     Dates: start: 20171112
  3. MERCAPTOPURINE. [Suspect]
     Active Substance: MERCAPTOPURINE
     Dosage: 40MG,QD
     Route: 048
     Dates: start: 20180125
  4. CYTARABINE. [Suspect]
     Active Substance: CYTARABINE
     Dosage: 50 MG Q24H
     Route: 042
     Dates: start: 20180125
  5. ZOFRAN [Concomitant]
     Active Substance: ONDANSETRON HYDROCHLORIDE
     Indication: PRODUCT USED FOR UNKNOWN INDICATION
     Dosage: UNKNOWN
     Dates: start: 20171112
  6. RUXOLITINIB [Suspect]
     Active Substance: RUXOLITINIB
     Indication: ACUTE LYMPHOCYTIC LEUKAEMIA
     Dosage: 25MG BID
     Route: 048
     Dates: start: 20171215, end: 20180111
  7. ASPARAGINASE [Suspect]
     Active Substance: ASPARAGINASE
     Dosage: 16750 UNITS,Q48H
     Route: 042
     Dates: start: 20180101
  8. ASPARAGINASE [Suspect]
     Active Substance: ASPARAGINASE
     Dosage: 16750 UNITS, Q48H
     Route: 030
     Dates: start: 20180209
  9. CYTARABINE. [Suspect]
     Active Substance: CYTARABINE
     Dosage: 50 MG, Q24H
     Route: 042
     Dates: start: 20180201
  10. MICONAZOLE. [Concomitant]
     Active Substance: MICONAZOLE
     Indication: PRODUCT USED FOR UNKNOWN INDICATION
     Dosage: UNK
     Dates: start: 20180108
  11. ROXICODONE [Concomitant]
     Active Substance: OXYCODONE HYDROCHLORIDE
     Indication: PRODUCT USED FOR UNKNOWN INDICATION
     Dosage: UNKNOWN
     Dates: start: 20171112
  12. CALCIUM CARBONATE. [Concomitant]
     Active Substance: CALCIUM CARBONATE
     Indication: PRODUCT USED FOR UNKNOWN INDICATION
     Dosage: UNK
     Dates: start: 20171112
  13. LIDOCAINE W/PRILOCAINE [Concomitant]
     Active Substance: LIDOCAINE\PRILOCAINE
     Indication: PRODUCT USED FOR UNKNOWN INDICATION
     Dosage: UNKNOWN
     Dates: start: 20171112
  14. MELATONIN [Concomitant]
     Active Substance: MELATONIN
     Indication: PRODUCT USED FOR UNKNOWN INDICATION
     Dosage: UNKNOWN
     Dates: start: 20171116
  15. CYTARABINE. [Suspect]
     Active Substance: CYTARABINE
     Indication: ACUTE LYMPHOCYTIC LEUKAEMIA
     Dosage: 50 MG,Q24H
     Route: 042
     Dates: start: 20171221, end: 20180112
  16. CYCLOPHOSPHAMIDE. [Suspect]
     Active Substance: CYCLOPHOSPHAMIDE
     Indication: ACUTE LYMPHOCYTIC LEUKAEMIA
     Dosage: 670 MG, ONCE
     Route: 042
     Dates: start: 20171215, end: 20180112
  17. CHOLECALCIFEROL [Concomitant]
     Active Substance: CHOLECALCIFEROL
     Indication: PRODUCT USED FOR UNKNOWN INDICATION
     Dosage: UNK
     Dates: start: 20171112
  18. HYDROXYZINE [Concomitant]
     Active Substance: HYDROXYZINE HYDROCHLORIDE
     Indication: PRODUCT USED FOR UNKNOWN INDICATION
     Dosage: UNKNOWN
     Dates: start: 20171112
  19. BENADRYL [Concomitant]
     Active Substance: DIPHENHYDRAMINE HYDROCHLORIDE
     Indication: PRODUCT USED FOR UNKNOWN INDICATION
     Dosage: UNKNOWN
     Dates: start: 20171214
  20. CYCLOPHOSPHAMIDE. [Suspect]
     Active Substance: CYCLOPHOSPHAMIDE
     Dosage: 670 MG, QD
     Route: 042
     Dates: start: 20180125, end: 20180125
  21. METHOTREXATE. [Suspect]
     Active Substance: METHOTREXATE
     Indication: ACUTE LYMPHOCYTIC LEUKAEMIA
     Dosage: 12 MG,QD
     Route: 037
     Dates: start: 20180104, end: 20180104
  22. BACTRIM [Concomitant]
     Active Substance: SULFAMETHOXAZOLE\TRIMETHOPRIM
     Indication: PRODUCT USED FOR UNKNOWN INDICATION
     Dosage: UNK
     Dates: start: 20171112
  23. MERCAPTOPURINE. [Suspect]
     Active Substance: MERCAPTOPURINE
     Indication: ACUTE LYMPHOCYTIC LEUKAEMIA
     Dosage: 40 MG, QD
     Route: 048
     Dates: start: 20171215, end: 20180112
  24. PEGASPARGASE [Suspect]
     Active Substance: PEGASPARGASE
     Indication: ACUTE LYMPHOCYTIC LEUKAEMIA
     Dosage: 1675 UNITS ONCE
     Route: 042
     Dates: start: 20171228, end: 20171228
  25. VINCRISTINE [Suspect]
     Active Substance: VINCRISTINE
     Dosage: 1 MG,ONCE
     Route: 042
     Dates: start: 20180215, end: 20180215
  26. LACTULOSE. [Concomitant]
     Active Substance: LACTULOSE
     Indication: PRODUCT USED FOR UNKNOWN INDICATION
     Dosage: UNK
     Dates: start: 20171112
  27. RUXOLITINIB [Suspect]
     Active Substance: RUXOLITINIB
     Dosage: 25MG BID
     Route: 048
     Dates: start: 20180125
  28. ASPARAGINASE [Suspect]
     Active Substance: ASPARAGINASE
     Indication: INFUSION RELATED REACTION
     Dosage: 16750 UNITS, ONCE
     Route: 030
     Dates: start: 20171229, end: 20171229
  29. ASPARAGINASE [Suspect]
     Active Substance: ASPARAGINASE
     Dosage: 16750 UNITS, Q48H
     Route: 030
     Dates: start: 20180103
  30. POLY-VI-SOL                        /00200301/ [Concomitant]
     Indication: PRODUCT USED FOR UNKNOWN INDICATION
     Dosage: UNKNOWN
     Dates: start: 20171112
  31. REGLAN [Concomitant]
     Active Substance: METOCLOPRAMIDE HYDROCHLORIDE
     Indication: PRODUCT USED FOR UNKNOWN INDICATION
     Dosage: UNKNOWN
     Dates: start: 20171214

REACTIONS (8)
  - Vomiting [Not Recovered/Not Resolved]
  - Hypoalbuminaemia [Unknown]
  - Blood creatinine increased [Unknown]
  - Dehydration [Unknown]
  - Nausea [Unknown]
  - Lymphocyte count decreased [Unknown]
  - Febrile neutropenia [Recovered/Resolved]
  - Diarrhoea [Not Recovered/Not Resolved]

NARRATIVE: CASE EVENT DATE: 20180112
